FAERS Safety Report 8171762-5 (Version None)
Quarter: 2012Q1

REPORT INFORMATION
  Report Type: 
  Country: None (occurrence: None)
  Receive Date: 20120228
  Receipt Date: 20120223
  Transmission Date: 20120608
  Serious: Yes (Hospitalization)
  Sender: FDA-Public Use
  Company Number: US-GLAXOSMITHKLINE-A0898257A

PATIENT
  Age: 51 Year
  Sex: Male
  Weight: 104.5 kg

DRUGS (6)
  1. LEVITRA [Concomitant]
  2. LOTENSIN [Concomitant]
  3. AVANDIA [Suspect]
     Indication: DIABETES MELLITUS
     Dosage: 4MG PER DAY
     Route: 048
     Dates: start: 20051201, end: 20080801
  4. METFORMIN HCL [Concomitant]
  5. ZOCOR [Concomitant]
  6. RANITIDINE [Concomitant]

REACTIONS (4)
  - CARDIAC FAILURE [None]
  - CARDIAC FAILURE CONGESTIVE [None]
  - VENTRICULAR ASSIST DEVICE INSERTION [None]
  - ISCHAEMIC CARDIOMYOPATHY [None]
